FAERS Safety Report 9731537 (Version 1)
Quarter: 2013Q4

REPORT INFORMATION
  Report Type: Spontaneous
  Country: IE (occurrence: IE)
  Receive Date: 20131205
  Receipt Date: 20131205
  Transmission Date: 20140711
  Serious: Yes (Hospitalization, Other)
  Sender: FDA-Public Use
  Company Number: PHHY2013IE138274

PATIENT
  Age: 76 Year
  Sex: Male

DRUGS (5)
  1. WARFARIN [Suspect]
     Indication: ATRIAL FIBRILLATION
  2. AMIODARONE [Concomitant]
  3. METOPROLOL [Concomitant]
  4. ROSUVASTATIN [Concomitant]
  5. FRUSEMIDE [Concomitant]

REACTIONS (12)
  - Spinal cord compression [Recovered/Resolved]
  - Spinal subdural haematoma [Recovering/Resolving]
  - Spinal cord haemorrhage [Recovering/Resolving]
  - Back pain [Recovering/Resolving]
  - Muscular weakness [Recovering/Resolving]
  - Paraparesis [Recovering/Resolving]
  - Areflexia [Recovering/Resolving]
  - Hypotonia [Recovering/Resolving]
  - Sensory disturbance [Recovering/Resolving]
  - Dysuria [Recovering/Resolving]
  - Urinary retention [Recovering/Resolving]
  - International normalised ratio increased [Recovering/Resolving]
